FAERS Safety Report 25346285 (Version 2)
Quarter: 2025Q2

REPORT INFORMATION
  Report Type: Spontaneous
  Country: US (occurrence: US)
  Receive Date: 20250522
  Receipt Date: 20250531
  Transmission Date: 20250716
  Serious: Yes (Life-Threatening, Hospitalization, Other)
  Sender: AUROBINDO
  Company Number: US-MLMSERVICE-20250502-PI488953-00145-1

PATIENT
  Age: 69 Year
  Sex: Male

DRUGS (7)
  1. DIPHENHYDRAMINE [Suspect]
     Active Substance: DIPHENHYDRAMINE
     Indication: Product used for unknown indication
     Route: 045
  2. KETAMINE HYDROCHLORIDE [Suspect]
     Active Substance: KETAMINE HYDROCHLORIDE
     Indication: Product used for unknown indication
     Route: 065
  3. QUININE SULFATE [Suspect]
     Active Substance: QUININE SULFATE
     Indication: Product used for unknown indication
     Route: 045
  4. NALOXONE HYDROCHLORIDE [Suspect]
     Active Substance: NALOXONE HYDROCHLORIDE
     Indication: Drug use disorder
     Route: 030
  5. BUPRENORPHINE [Suspect]
     Active Substance: BUPRENORPHINE
     Indication: Drug use disorder
     Route: 042
  6. BUPRENORPHINE [Suspect]
     Active Substance: BUPRENORPHINE
     Route: 058
  7. MORPHINE [Suspect]
     Active Substance: MORPHINE
     Indication: Product used for unknown indication
     Route: 045

REACTIONS (11)
  - Hypoxia [Unknown]
  - Unresponsive to stimuli [Unknown]
  - Atrioventricular dissociation [Unknown]
  - Diastolic dysfunction [Unknown]
  - Miosis [Unknown]
  - Mental status changes [Unknown]
  - Respiration abnormal [Unknown]
  - Sinus bradycardia [Recovered/Resolved]
  - Intentional overdose [Unknown]
  - Sedation complication [Unknown]
  - Therapy partial responder [Unknown]
